FAERS Safety Report 11878440 (Version 1)
Quarter: 2015Q4

REPORT INFORMATION
  Report Type: Spontaneous
  Country: US (occurrence: None)
  Receive Date: 20151229
  Receipt Date: 20151229
  Transmission Date: 20160305
  Serious: Yes (Life-Threatening, Hospitalization, Disabling)
  Sender: FDA-Public Use
  Company Number: None

PATIENT
  Age: 72 Year
  Sex: Male
  Weight: 60.78 kg

DRUGS (9)
  1. POSACONAZOLE [Suspect]
     Active Substance: POSACONAZOLE
     Indication: MEDIASTINAL MASS
     Route: 048
     Dates: start: 20151125, end: 20151228
  2. GLIPIZIDE. [Concomitant]
     Active Substance: GLIPIZIDE
  3. PIOGLITAZONE. [Concomitant]
     Active Substance: PIOGLITAZONE
  4. STROVITE [Concomitant]
  5. ACETAMINOPHEN WITH CODINE [Concomitant]
  6. METFORMIN [Concomitant]
     Active Substance: METFORMIN HYDROCHLORIDE
  7. BLOOD SUGAR MONITOR [Concomitant]
  8. SENEKOT [Concomitant]
  9. POSACONAZOLE [Suspect]
     Active Substance: POSACONAZOLE
     Indication: FUNGAL INFECTION
     Route: 048
     Dates: start: 20151125, end: 20151228

REACTIONS (9)
  - Nausea [None]
  - Dry mouth [None]
  - Oropharyngeal pain [None]
  - Cardiac failure congestive [None]
  - Night sweats [None]
  - Dyspnoea [None]
  - Peripheral swelling [None]
  - Chest pain [None]
  - Vomiting [None]

NARRATIVE: CASE EVENT DATE: 20151218
